FAERS Safety Report 6772233-0 (Version None)
Quarter: 2010Q2

REPORT INFORMATION
  Report Type: 
  Country: None (occurrence: None)
  Receive Date: 20100614
  Receipt Date: 20100518
  Transmission Date: 20101027
  Serious: Yes (Hospitalization)
  Sender: FDA-Public Use
  Company Number: 2010002321

PATIENT
  Age: 63 Year

DRUGS (3)
  1. ERLOTINIB/PLACEBO (ERLOTINIB) (TABLET) (ERLOTINIB) [Suspect]
     Indication: NON-SMALL CELL LUNG CANCER
     Dosage: ORAL
     Route: 048
     Dates: start: 20100226, end: 20100517
  2. GEMCITABINE [Suspect]
     Indication: NON-SMALL CELL LUNG CANCER
     Dosage: 1438 MG, 2X PER MONTH, INTRAVENOUS
     Route: 042
     Dates: start: 20100212, end: 20100517
  3. CARBOPLATIN [Suspect]
     Indication: NON-SMALL CELL LUNG CANCER
     Dosage: 287 MG, 1X PER MONT, INTRAVENOUS
     Route: 042
     Dates: start: 20100212, end: 20100517

REACTIONS (1)
  - ANAEMIA [None]
